FAERS Safety Report 4510249-5 (Version None)
Quarter: 2004Q4

REPORT INFORMATION
  Report Type: 
  Country: None (occurrence: None)
  Receive Date: 20041124
  Receipt Date: 20041019
  Transmission Date: 20050328
  Serious: Yes (Hospitalization)
  Sender: FDA-Public Use
  Company Number: US-MERCK-0410USA02879

PATIENT
  Sex: Male

DRUGS (13)
  1. VIOXX [Suspect]
     Indication: PAIN
     Route: 048
     Dates: start: 20001001, end: 20040623
  2. VIOXX [Suspect]
     Indication: INFLAMMATION
     Route: 048
     Dates: start: 20001001, end: 20040623
  3. LOTENSIN [Concomitant]
     Route: 065
  4. ZIAC [Concomitant]
     Route: 065
  5. NUBAIN [Concomitant]
     Indication: REFLEX SYMPATHETIC DYSTROPHY
     Route: 030
     Dates: start: 20020101
  6. PROZAC [Concomitant]
     Indication: DEPRESSION
     Route: 048
     Dates: start: 20000101
  7. PROZAC [Concomitant]
     Indication: ANXIETY
     Route: 048
     Dates: start: 20000101
  8. WELLBUTRIN SR [Concomitant]
     Indication: ANXIETY
     Route: 048
     Dates: start: 20030101
  9. WELLBUTRIN SR [Concomitant]
     Indication: DEPRESSION
     Route: 048
     Dates: start: 20030101
  10. VALIUM [Concomitant]
     Indication: ANXIETY
     Route: 048
     Dates: start: 20000101
  11. VALIUM [Concomitant]
     Indication: DEPRESSION
     Route: 048
     Dates: start: 20000101
  12. KEPPRA [Concomitant]
     Indication: REFLEX SYMPATHETIC DYSTROPHY
     Route: 048
     Dates: start: 20030101
  13. KEPPRA [Concomitant]
     Route: 048
     Dates: start: 20030101

REACTIONS (9)
  - DEMENTIA [None]
  - DEPRESSION [None]
  - DYSPHORIA [None]
  - FALL [None]
  - LOSS OF CONSCIOUSNESS [None]
  - POLYTRAUMATISM [None]
  - REFLEX SYMPATHETIC DYSTROPHY [None]
  - RENAL IMPAIRMENT [None]
  - RIB FRACTURE [None]
